FAERS Safety Report 24623114 (Version 2)
Quarter: 2024Q4

REPORT INFORMATION
  Report Type: Spontaneous
  Country: DE (occurrence: DE)
  Receive Date: 20241115
  Receipt Date: 20241203
  Transmission Date: 20250114
  Serious: Yes (Hospitalization, Other)
  Sender: AUROBINDO
  Company Number: DE-BRISTOL-MYERS SQUIBB COMPANY-2024-160406

PATIENT
  Age: 75 Year
  Sex: Male
  Weight: 79 kg

DRUGS (5)
  1. OXALIPLATIN [Suspect]
     Active Substance: OXALIPLATIN
     Indication: Gastric cancer
     Dosage: 163 MILLIGRAM FOR EVERY 14 DAYS
     Route: 042
     Dates: start: 20220926
  2. FLUOROURACIL [Suspect]
     Active Substance: FLUOROURACIL
     Indication: Gastric cancer
     Dosage: 4992 MILLIGRAM FOR EVERY 14 DAYS
     Route: 065
     Dates: start: 20220926
  3. OPDIVO [Suspect]
     Active Substance: NIVOLUMAB
     Indication: Gastric cancer
     Dosage: 240 MILLIGRAM  14 DAYS
     Route: 042
     Dates: start: 20220926
  4. TRIFLURIDINE [Suspect]
     Active Substance: TRIFLURIDINE
     Indication: Gastric cancer
     Dosage: 70 MILLIGRAM, 28 DAYS CYCLICAL
     Route: 048
     Dates: start: 20240513, end: 20240708
  5. ONDANSETRON [Concomitant]
     Active Substance: ONDANSETRON
     Indication: Prophylaxis
     Dosage: 4 MILLIGRAM, ONCE A DAY
     Route: 048
     Dates: start: 20230612

REACTIONS (4)
  - Nausea [Recovered/Resolved]
  - Metastases to liver [Unknown]
  - Decreased appetite [Unknown]
  - Weight decreased [Unknown]

NARRATIVE: CASE EVENT DATE: 20240908
